FAERS Safety Report 25933104 (Version 1)
Quarter: 2025Q4

REPORT INFORMATION
  Report Type: Spontaneous
  Country: JP (occurrence: JP)
  Receive Date: 20251017
  Receipt Date: 20251017
  Transmission Date: 20260117
  Serious: Yes (Death, Hospitalization, Other)
  Sender: SPECGX
  Company Number: JP-SPECGX-T202501706

PATIENT
  Age: 7 Decade
  Sex: Female

DRUGS (6)
  1. METHADONE [Suspect]
     Active Substance: METHADONE HYDROCHLORIDE
     Indication: Cancer pain
     Dosage: 15 MILLIGRAM, QD
     Route: 048
  2. METHADONE [Suspect]
     Active Substance: METHADONE HYDROCHLORIDE
     Dosage: 25 MILLIGRAM, QD
     Route: 048
  3. HYDROMORPHONE HYDROCHLORIDE [Concomitant]
     Active Substance: HYDROMORPHONE HYDROCHLORIDE
     Indication: Cancer pain
     Dosage: UNK MILLIGRAM
     Route: 065
  4. HYDROMORPHONE HYDROCHLORIDE [Concomitant]
     Active Substance: HYDROMORPHONE HYDROCHLORIDE
     Indication: Cancer pain
     Dosage: 1 MILLIGRAM
     Route: 065
  5. KETAMINE HYDROCHLORIDE [Concomitant]
     Active Substance: KETAMINE HYDROCHLORIDE
     Indication: Cancer pain
     Dosage: 6 MILLIGRAM
     Route: 065
  6. CORTICOTROPIN [Concomitant]
     Active Substance: CORTICOTROPIN
     Indication: Product used for unknown indication
     Dosage: UNK
     Route: 065

REACTIONS (5)
  - Colon cancer [Fatal]
  - Malignant neoplasm progression [Fatal]
  - Metastases to lung [Unknown]
  - Delirium [Unknown]
  - Somnolence [Unknown]
